FAERS Safety Report 6355745-3 (Version None)
Quarter: 2009Q3

REPORT INFORMATION
  Report Type: 
  Country: None (occurrence: None)
  Receive Date: 20090915
  Receipt Date: 20090908
  Transmission Date: 20100115
  Serious: Yes (Other)
  Sender: FDA-Public Use
  Company Number: US-BIOGENIDEC-2009BI020570

PATIENT
  Age: 61 Year
  Sex: Female

DRUGS (2)
  1. AVONEX [Suspect]
     Indication: MULTIPLE SCLEROSIS
     Route: 030
     Dates: start: 20060101
  2. BETA BLOCKER (NOS) [Concomitant]
     Indication: CARDIAC DISORDER

REACTIONS (7)
  - BONE PAIN [None]
  - CARDIOMEGALY [None]
  - CHEST DISCOMFORT [None]
  - INJECTION SITE HAEMATOMA [None]
  - MUSCLE TIGHTNESS [None]
  - SPEECH DISORDER [None]
  - VENOUS INJURY [None]
